FAERS Safety Report 7029827-7 (Version None)
Quarter: 2010Q4

REPORT INFORMATION
  Report Type: 
  Country: None (occurrence: None)
  Receive Date: 20101006
  Receipt Date: 20100927
  Transmission Date: 20110411
  Serious: Yes (Hospitalization)
  Sender: FDA-Public Use
  Company Number: US-BIOGENIDEC-2010BI017972

PATIENT
  Age: 58 Year
  Sex: Male

DRUGS (2)
  1. AVONEX [Suspect]
     Indication: MULTIPLE SCLEROSIS
     Route: 030
     Dates: start: 19980801, end: 20061001
  2. AVONEX [Suspect]
     Route: 030
     Dates: start: 20090109, end: 20100501

REACTIONS (3)
  - GAIT DISTURBANCE [None]
  - INTERVERTEBRAL DISC INJURY [None]
  - PERONEAL NERVE PALSY [None]
